FAERS Safety Report 25884497 (Version 3)
Quarter: 2025Q4

REPORT INFORMATION
  Report Type: Report from Study
  Country: US (occurrence: US)
  Receive Date: 20251006
  Receipt Date: 20251223
  Transmission Date: 20260118
  Serious: Yes (Death)
  Sender: JOHNSON AND JOHNSON
  Company Number: US-JNJFOC-20251002821

PATIENT
  Age: 70 Year
  Sex: Female

DRUGS (1)
  1. CARVYKTI [Suspect]
     Active Substance: CILTACABTAGENE AUTOLEUCEL
     Indication: Plasma cell myeloma

REACTIONS (5)
  - Pneumonia [Fatal]
  - Enteropathy-associated T-cell lymphoma [Fatal]
  - Plasma cell myeloma [Fatal]
  - Adverse event [Fatal]
  - Lung disorder [Fatal]
